FAERS Safety Report 8436856-5 (Version None)
Quarter: 2012Q2

REPORT INFORMATION
  Report Type: 
  Country: None (occurrence: None)
  Receive Date: 20120614
  Receipt Date: 20120531
  Transmission Date: 20120825
  Serious: Yes (Other)
  Sender: FDA-Public Use
  Company Number: US-ASTRAZENECA-2011SE32539

PATIENT
  Age: 77 Year
  Sex: Male
  Weight: 72.6 kg

DRUGS (7)
  1. CITALOPRAM [Concomitant]
  2. ACITEN [Concomitant]
     Indication: DYSPEPSIA
  3. LIPITOR [Suspect]
  4. SEROQUEL [Suspect]
     Indication: DEPRESSION
     Route: 048
     Dates: start: 20080101
  5. SEROQUEL [Suspect]
     Indication: IMPULSE-CONTROL DISORDER
     Route: 048
     Dates: start: 20080101
  6. NORVASC [Concomitant]
  7. ACIPHEX [Concomitant]

REACTIONS (11)
  - DRUG DOSE OMISSION [None]
  - LUMBAR VERTEBRAL FRACTURE [None]
  - NERVOUSNESS [None]
  - INSOMNIA [None]
  - FEELING ABNORMAL [None]
  - BACK PAIN [None]
  - OFF LABEL USE [None]
  - SUICIDAL IDEATION [None]
  - THERAPEUTIC RESPONSE UNEXPECTED [None]
  - MALAISE [None]
  - ANXIETY [None]
